FAERS Safety Report 8811801 (Version 1)
Quarter: 2012Q4

REPORT INFORMATION
  Report Type: 
  Country: US (occurrence: US)
  Receive Date: 20120927
  Receipt Date: 20120927
  Transmission Date: 20130627
  Serious: Yes (Hospitalization)
  Sender: FDA-Public Use
  Company Number: US-GLAXOSMITHKLINE-A0815654A

PATIENT
  Age: 60 Year
  Sex: Male
  Weight: 118.2 kg

DRUGS (4)
  1. AVANDIA [Suspect]
     Indication: DIABETES MELLITUS
     Dosage: 2MG Twice per day
     Route: 048
     Dates: end: 20040508
  2. CELLCEPT [Concomitant]
  3. ATENOLOL [Concomitant]
  4. INSULIN [Concomitant]

REACTIONS (1)
  - Myocardial infarction [Unknown]
